FAERS Safety Report 14088744 (Version 1)
Quarter: 2017Q4

REPORT INFORMATION
  Report Type: Spontaneous
  Country: US (occurrence: US)
  Receive Date: 20171013
  Receipt Date: 20171013
  Transmission Date: 20180321
  Serious: No
  Sender: FDA-Public Use
  Company Number: US-SA-2017SA159143

PATIENT
  Age: 38 Year
  Sex: Female

DRUGS (1)
  1. AUBAGIO [Suspect]
     Active Substance: TERIFLUNOMIDE
     Indication: MULTIPLE SCLEROSIS
     Route: 048
     Dates: start: 2017

REACTIONS (9)
  - Swelling [Unknown]
  - Decreased interest [Unknown]
  - Weight decreased [Unknown]
  - Pain [Unknown]
  - Erythema [Unknown]
  - Decreased appetite [Unknown]
  - Nausea [Unknown]
  - Rash pustular [Unknown]
  - Fatigue [Unknown]

NARRATIVE: CASE EVENT DATE: 201707
